FAERS Safety Report 9858577 (Version 1)
Quarter: 2014Q1

REPORT INFORMATION
  Report Type: Spontaneous
  Country: US (occurrence: None)
  Receive Date: 20140129
  Receipt Date: 20140129
  Transmission Date: 20141002
  Serious: Yes (Death)
  Sender: FDA-Public Use
  Company Number: 2014AP000525

PATIENT
  Age: 74 Year
  Sex: Female

DRUGS (6)
  1. CITALOPRAM HYDROBROMIDE [Suspect]
     Dosage: ; PO
     Route: 048
  2. PRAMIPEXOLE DIHYDROCHLORIDE [Suspect]
     Dosage: ; PO
     Route: 048
  3. DIPHENHYDRAMINE [Suspect]
     Dosage: ; PO
     Route: 048
  4. ANGIOTENSIN RECEPTOR BLOCKER NOS [Suspect]
     Dosage: ; PO
     Route: 048
  5. CHLORTHALIDONE [Suspect]
     Dosage: ; PO
     Route: 048
  6. RIFAXIMIN [Suspect]
     Dosage: ; PO
     Route: 048

REACTIONS (1)
  - Completed suicide [None]
